FAERS Safety Report 4594968-0 (Version None)
Quarter: 2005Q1

REPORT INFORMATION
  Report Type: 
  Country: None (occurrence: None)
  Receive Date: 20050223
  Receipt Date: 20050210
  Transmission Date: 20050727
  Serious: Yes (Hospitalization)
  Sender: FDA-Public Use
  Company Number: 2005028765

PATIENT
  Age: 73 Year
  Sex: Male

DRUGS (1)
  1. DOXAZOSIN MESYLATE [Suspect]
     Indication: BENIGN PROSTATIC HYPERPLASIA
     Dosage: 4 MG (4 MG, SINGLE INTERVAL: EVERYDAY), ORAL
     Route: 048
     Dates: start: 20011215

REACTIONS (2)
  - CHEST DISCOMFORT [None]
  - DYSPNOEA [None]
